FAERS Safety Report 25776293 (Version 1)
Quarter: 2025Q3

REPORT INFORMATION
  Report Type: Spontaneous
  Country: US (occurrence: US)
  Receive Date: 20250909
  Receipt Date: 20250909
  Transmission Date: 20251021
  Serious: No
  Sender: CIPLA
  Company Number: US-CIPLA LTD.-2024US11725

PATIENT

DRUGS (3)
  1. DICLOFENAC [Suspect]
     Active Substance: DICLOFENAC
     Indication: Arthritis
     Route: 061
     Dates: start: 2023
  2. DICLOFENAC [Suspect]
     Active Substance: DICLOFENAC
     Route: 061
  3. DICLOFENAC [Suspect]
     Active Substance: DICLOFENAC
     Route: 061
     Dates: start: 2024

REACTIONS (2)
  - Product use complaint [Unknown]
  - Product outer packaging issue [Unknown]
